FAERS Safety Report 10661046 (Version 2)
Quarter: 2015Q1

REPORT INFORMATION
  Report Type: Spontaneous
  Country: US (occurrence: US)
  Receive Date: 20141218
  Receipt Date: 20150311
  Transmission Date: 20150720
  Serious: Yes (Hospitalization)
  Sender: FDA-Public Use
  Company Number: US-HORIZON-ACT-0004-2014

PATIENT
  Age: 21 Year
  Sex: Male

DRUGS (5)
  1. BACTRIM [Concomitant]
     Active Substance: SULFAMETHOXAZOLE\TRIMETHOPRIM
  2. PREDNISONE. [Concomitant]
     Active Substance: PREDNISONE
  3. ADVIL [Concomitant]
     Active Substance: IBUPROFEN
  4. ACTIMMUNE [Suspect]
     Active Substance: INTERFERON GAMMA-1B
     Indication: CHRONIC GRANULOMATOUS DISEASE
     Route: 058
  5. VORICONAZOLE. [Concomitant]
     Active Substance: VORICONAZOLE

REACTIONS (7)
  - Dysuria [Recovered/Resolved]
  - Staphylococcal infection [Unknown]
  - Lung infection [Not Recovered/Not Resolved]
  - Liver abscess [Unknown]
  - Treatment noncompliance [None]
  - Oral pain [Recovered/Resolved]
  - Pyrexia [Unknown]

NARRATIVE: CASE EVENT DATE: 201410
